FAERS Safety Report 4415991-2 (Version None)
Quarter: 2004Q3

REPORT INFORMATION
  Report Type: 
  Country: None (occurrence: None)
  Receive Date: 20040802
  Receipt Date: 20040716
  Transmission Date: 20050211
  Serious: No
  Sender: FDA-Public Use
  Company Number: 2004GB00183

PATIENT
  Sex: Female

DRUGS (1)
  1. ACCOLATE [Suspect]
     Indication: ASTHMA
     Dosage: 20 MG BID PO
     Route: 048
     Dates: start: 19980101, end: 20040622

REACTIONS (14)
  - ASTHENIA [None]
  - CHEST PAIN [None]
  - CONDITION AGGRAVATED [None]
  - DYSURIA [None]
  - FEELING ABNORMAL [None]
  - FIBROMYALGIA [None]
  - HYPOAESTHESIA [None]
  - JOINT SWELLING [None]
  - LOCALISED OSTEOARTHRITIS [None]
  - MYALGIA [None]
  - OEDEMA PERIPHERAL [None]
  - PARAESTHESIA [None]
  - SINUS DISORDER [None]
  - SPINAL OSTEOARTHRITIS [None]
